FAERS Safety Report 24960960 (Version 2)
Quarter: 2025Q1

REPORT INFORMATION
  Report Type: Spontaneous
  Country: US (occurrence: US)
  Receive Date: 20250212
  Receipt Date: 20250220
  Transmission Date: 20250408
  Serious: No
  Sender: CALLIDITAS THERAPEUTICS AB
  Company Number: US-Calliditas-2025CAL00338

PATIENT
  Age: 45 Year
  Sex: Male

DRUGS (1)
  1. TARPEYO [Suspect]
     Active Substance: BUDESONIDE
     Indication: Haematuria
     Route: 048
     Dates: start: 20240430, end: 20250219

REACTIONS (6)
  - Brain fog [Recovered/Resolved]
  - Myalgia [Recovering/Resolving]
  - Inappropriate schedule of product discontinuation [Unknown]
  - Acne [Recovering/Resolving]
  - Peripheral swelling [Recovering/Resolving]
  - Skin striae [Recovering/Resolving]

NARRATIVE: CASE EVENT DATE: 20240501
